FAERS Safety Report 16918197 (Version 2)
Quarter: 2019Q4

REPORT INFORMATION
  Report Type: Spontaneous
  Country: US (occurrence: US)
  Receive Date: 20191015
  Receipt Date: 20191203
  Transmission Date: 20200122
  Serious: No
  Sender: FDA-Public Use
  Company Number: US-JNJFOC-20191008011

PATIENT
  Sex: Female
  Weight: 82.63 kg

DRUGS (1)
  1. SIMPONI [Suspect]
     Active Substance: GOLIMUMAB
     Indication: RHEUMATOID ARTHRITIS
     Route: 058
     Dates: start: 20190827

REACTIONS (3)
  - Product storage error [Unknown]
  - Arthralgia [Recovered/Resolved]
  - Inappropriate schedule of product administration [Unknown]
